FAERS Safety Report 10096281 (Version 2)
Quarter: 2015Q3

REPORT INFORMATION
  Report Type: Spontaneous
  Country: US (occurrence: US)
  Receive Date: 20140422
  Receipt Date: 20150812
  Transmission Date: 20151125
  Serious: No
  Sender: FDA-Public Use
  Company Number: US-GILEAD-2012-0060034

PATIENT
  Age: 40 Year
  Sex: Male

DRUGS (1)
  1. LETAIRIS [Suspect]
     Active Substance: AMBRISENTAN
     Indication: PRODUCT USED FOR UNKNOWN INDICATION
     Dosage: 10 MG, UNK
     Route: 048
     Dates: start: 20110711

REACTIONS (5)
  - Post-traumatic stress disorder [Unknown]
  - Bilevel positive airway pressure [Unknown]
  - Muscle strain [Unknown]
  - Gastrooesophageal reflux disease [Unknown]
  - Nightmare [Unknown]
